FAERS Safety Report 4817164-8 (Version None)
Quarter: 2005Q4

REPORT INFORMATION
  Report Type: 
  Country: None (occurrence: None)
  Receive Date: 20051101
  Receipt Date: 20050907
  Transmission Date: 20060501
  Serious: Yes (Death)
  Sender: FDA-Public Use
  Company Number: US-ROCHE-417018

PATIENT
  Age: 54 Year
  Sex: Male
  Weight: 80.9 kg

DRUGS (4)
  1. PEGASYS [Suspect]
     Indication: HEPATITIS C
     Route: 058
     Dates: start: 20050108, end: 20050714
  2. COPEGUS [Suspect]
     Indication: HEPATITIS C
     Route: 048
     Dates: start: 20050108, end: 20050714
  3. CELEXA [Concomitant]
     Indication: DEPRESSION
     Route: 048
     Dates: start: 20050427
  4. PROCRIT [Concomitant]
     Indication: ANAEMIA
     Dosage: STRENGTH AND FORMULATION REPORTED AS 20 000 UNITS AND 40 000 UNITS
     Route: 058
     Dates: start: 20050411

REACTIONS (4)
  - ACUTE RESPIRATORY DISTRESS SYNDROME [None]
  - LIMB INJURY [None]
  - ROAD TRAFFIC ACCIDENT [None]
  - SEPSIS [None]
